FAERS Safety Report 5261115-1 (Version None)
Quarter: 2007Q1

REPORT INFORMATION
  Report Type: 
  Country: None (occurrence: None)
  Receive Date: 20070309
  Receipt Date: 20070301
  Transmission Date: 20070707
  Serious: Yes (Death)
  Sender: FDA-Public Use
  Company Number: US-ELI_LILLY_AND_COMPANY-US200702000784

PATIENT
  Age: 37 Year
  Sex: Male
  Weight: 125.17 kg

DRUGS (1)
  1. HUMALOG MIX 50/50 [Suspect]
     Indication: DIABETES MELLITUS
     Dosage: 40 U, 3/D
     Dates: start: 20060714

REACTIONS (1)
  - MYOCARDIAL INFARCTION [None]
